FAERS Safety Report 7488814-5 (Version None)
Quarter: 2011Q1

REPORT INFORMATION
  Report Type: 
  Country: None (occurrence: None)
  Receive Date: 20110311
  Receipt Date: 20110131
  Transmission Date: 20110831
  Serious: No
  Sender: FDA-Public Use
  Company Number: TH-2011-00001

PATIENT
  Sex: Male

DRUGS (1)
  1. EGRIFTA [Suspect]
     Indication: LIPODYSTROPHY ACQUIRED
     Dosage: 1 IN 1 D
     Dates: start: 20110124

REACTIONS (3)
  - INFLUENZA LIKE ILLNESS [None]
  - ARTHRALGIA [None]
  - NAUSEA [None]
